FAERS Safety Report 4280615-4 (Version None)
Quarter: 2004Q1

REPORT INFORMATION
  Report Type: 
  Country: None (occurrence: None)
  Receive Date: 20040127
  Receipt Date: 20040115
  Transmission Date: 20041129
  Serious: Yes (Death, Hospitalization, Other)
  Sender: FDA-Public Use
  Company Number: 2004003131

PATIENT
  Age: 75 Year
  Sex: Female

DRUGS (3)
  1. NORVASC [Suspect]
     Indication: BLOOD PRESSURE
     Dosage: 20 MG (DAILY)
  2. LIPITOR [Suspect]
     Indication: ILL-DEFINED DISORDER
  3. MULTIVITAMIN [Concomitant]

REACTIONS (13)
  - BACK PAIN [None]
  - BRONCHIAL INFECTION [None]
  - COMA [None]
  - CONTUSION [None]
  - DYSPNOEA [None]
  - ENCEPHALITIS [None]
  - ENDOTRACHEAL INTUBATION COMPLICATION [None]
  - FAECALOMA [None]
  - INCOHERENT [None]
  - MEMORY IMPAIRMENT [None]
  - ROAD TRAFFIC ACCIDENT [None]
  - THROAT IRRITATION [None]
  - VASCULAR OCCLUSION [None]
